FAERS Safety Report 5699698-X (Version None)
Quarter: 2008Q2

REPORT INFORMATION
  Report Type: 
  Country: None (occurrence: None)
  Receive Date: 20080410
  Receipt Date: 20080401
  Transmission Date: 20081010
  Serious: Yes (Hospitalization, Other)
  Sender: FDA-Public Use
  Company Number: PHEH2007US03769

PATIENT
  Age: 57 Year
  Sex: Female
  Weight: 62.131 kg

DRUGS (14)
  1. MEDROXYPROGESTERONE ACETATE [Suspect]
     Indication: HORMONE REPLACEMENT THERAPY
     Dosage: 10 MG, UNK
     Dates: start: 19950401
  2. CYCRIN [Suspect]
     Indication: HORMONE REPLACEMENT THERAPY
     Dosage: 2.5 MG, UNK
  3. PREMARIN [Suspect]
     Indication: HORMONE REPLACEMENT THERAPY
  4. ESTRING [Suspect]
     Indication: HORMONE REPLACEMENT THERAPY
     Dosage: 2 MG, UNK
  5. ESTRADERM [Suspect]
     Indication: HORMONE REPLACEMENT THERAPY
     Dates: end: 19980701
  6. ZANTAC [Concomitant]
     Indication: REFLUX OESOPHAGITIS
  7. PRILOSEC [Concomitant]
     Indication: REFLUX OESOPHAGITIS
  8. ZOCOR [Concomitant]
     Indication: BLOOD CHOLESTEROL INCREASED
  9. LIPITOR [Concomitant]
     Indication: BLOOD CHOLESTEROL INCREASED
     Dosage: 10MG QD
  10. METOCLOPRAMIDE [Concomitant]
  11. PREMARIN [Concomitant]
     Dates: start: 20031009
  12. CELEXA [Concomitant]
  13. GLUCOSAMINE [Concomitant]
  14. PLAVIX [Concomitant]
     Dates: start: 20050502

REACTIONS (45)
  - ABDOMINAL PAIN UPPER [None]
  - AMNESIA [None]
  - ASTHENIA [None]
  - ATROPHIC VULVOVAGINITIS [None]
  - BACK PAIN [None]
  - BALANCE DISORDER [None]
  - CARDIAC SEPTAL DEFECT [None]
  - CAROTID ARTERY DISEASE [None]
  - CATARACT [None]
  - CATARACT OPERATION [None]
  - CEREBRAL INFARCTION [None]
  - CEREBROVASCULAR ACCIDENT [None]
  - DEHYDRATION [None]
  - DIZZINESS POSTURAL [None]
  - DYSARTHRIA [None]
  - DYSPAREUNIA [None]
  - EJECTION FRACTION DECREASED [None]
  - FALL [None]
  - FIBROMUSCULAR DYSPLASIA [None]
  - FLANK PAIN [None]
  - GAIT DISTURBANCE [None]
  - GASTROINTESTINAL INFLAMMATION [None]
  - HEADACHE [None]
  - HEMIANOPIA HOMONYMOUS [None]
  - HOT FLUSH [None]
  - HYPERLIPIDAEMIA [None]
  - LETHARGY [None]
  - LICHEN SCLEROSUS [None]
  - MALAISE [None]
  - MITRAL VALVE INCOMPETENCE [None]
  - MITRAL VALVE PROLAPSE [None]
  - MUSCULAR WEAKNESS [None]
  - MUSCULOSKELETAL CHEST PAIN [None]
  - NAUSEA [None]
  - OSTEOPENIA [None]
  - OSTEOPOROSIS [None]
  - OVARIAN CYST [None]
  - REFLUX OESOPHAGITIS [None]
  - TEMPOROMANDIBULAR JOINT SYNDROME [None]
  - TRICUSPID VALVE INCOMPETENCE [None]
  - VERTIGO [None]
  - VISUAL DISTURBANCE [None]
  - VISUAL FIELD DEFECT [None]
  - VULVAL LEUKOPLAKIA [None]
  - VULVOVAGINAL DRYNESS [None]
